FAERS Safety Report 7824138-1 (Version None)
Quarter: 2011Q4

REPORT INFORMATION
  Report Type: 
  Country: None (occurrence: None)
  Receive Date: 20111014
  Receipt Date: 20111005
  Transmission Date: 20120403
  Serious: Yes (Life-Threatening)
  Sender: FDA-Public Use
  Company Number: LEO-2011-00812

PATIENT
  Sex: Female

DRUGS (1)
  1. INHOHEP (TINZAPARIN SODIUM) (INJECTION) [Suspect]
     Indication: THROMBOSIS PROPHYLAXIS
     Dosage: 4500 IU,SUBCUTANEOUS
     Route: 058

REACTIONS (1)
  - POST PROCEDURAL PULMONARY EMBOLISM [None]
